FAERS Safety Report 4628168-2 (Version None)
Quarter: 2005Q2

REPORT INFORMATION
  Report Type: 
  Country: None (occurrence: None)
  Receive Date: 20050401
  Receipt Date: 20050316
  Transmission Date: 20051028
  Serious: Yes (Hospitalization)
  Sender: FDA-Public Use
  Company Number: 2005-DE-01081DE

PATIENT
  Age: 74 Year
  Sex: Male

DRUGS (7)
  1. SIFROL (PRAMIPEXOLE DIHYDROCHLORIDE) (TA) [Suspect]
     Indication: PARKINSON'S DISEASE
     Dosage: 3 X 0,35 MG (0.7 MG)
     Route: 048
  2. MADOPAR (MADOPAR) [Concomitant]
  3. PEKALEVO [Concomitant]
  4. NACOM RETARD [Concomitant]
  5. LEVOBETA (TA) [Concomitant]
  6. BLOPRESS (CANDESARTAN CILEXETIL) [Concomitant]
  7. ASPIRIN [Concomitant]

REACTIONS (4)
  - APHASIA [None]
  - CONFUSIONAL STATE [None]
  - DEHYDRATION [None]
  - TRANSIENT ISCHAEMIC ATTACK [None]
